APPROVED DRUG PRODUCT: AMINOCAPROIC ACID
Active Ingredient: AMINOCAPROIC ACID
Strength: 500MG
Dosage Form/Route: TABLET;ORAL
Application: A212492 | Product #001 | TE Code: AB
Applicant: AMNEAL EU LTD
Approved: Nov 26, 2019 | RLD: No | RS: No | Type: RX